FAERS Safety Report 16938713 (Version 1)
Quarter: 2019Q4

REPORT INFORMATION
  Report Type: Spontaneous
  Country: US (occurrence: US)
  Receive Date: 20191020
  Receipt Date: 20191020
  Transmission Date: 20200122
  Serious: No
  Sender: FDA-Public Use
  Company Number: US-ELI_LILLY_AND_COMPANY-US201910001298

PATIENT
  Sex: Female

DRUGS (3)
  1. LANTUS [Concomitant]
     Active Substance: INSULIN GLARGINE
     Indication: DIABETES MELLITUS
  2. HUMALOG [Suspect]
     Active Substance: INSULIN LISPRO
     Indication: PRODUCT USED FOR UNKNOWN INDICATION
     Dosage: UNK, UNKNOWN
     Route: 065
  3. TRAJENTA [Concomitant]
     Active Substance: LINAGLIPTIN
     Indication: DIABETES MELLITUS

REACTIONS (12)
  - Anxiety [Unknown]
  - Hyperhidrosis [Unknown]
  - Headache [Unknown]
  - Abdominal distension [Not Recovered/Not Resolved]
  - Vision blurred [Unknown]
  - Muscle spasms [Unknown]
  - Weight increased [Unknown]
  - Dizziness [Unknown]
  - Tremor [Unknown]
  - Feeling abnormal [Unknown]
  - Arthralgia [Unknown]
  - Dysarthria [Unknown]

NARRATIVE: CASE EVENT DATE: 201907
